FAERS Safety Report 16096510 (Version 1)
Quarter: 2019Q1

REPORT INFORMATION
  Report Type: Spontaneous
  Country: DE (occurrence: DE)
  Receive Date: 20190320
  Receipt Date: 20190320
  Transmission Date: 20190418
  Serious: Yes (Other)
  Sender: FDA-Public Use
  Company Number: DE-PFIZER INC-2019112790

PATIENT
  Age: 67 Year
  Sex: Male
  Weight: 89 kg

DRUGS (6)
  1. GABAPENTIN. [Suspect]
     Active Substance: GABAPENTIN
     Dosage: 300 MG, 1X/DAY (300 MG)
     Route: 065
  2. GABAPENTIN. [Suspect]
     Active Substance: GABAPENTIN
     Indication: NEURITIS
     Dosage: 900 MG, 1X/DAY (300 MG)
     Route: 065
     Dates: start: 20190107
  3. GLYCOPYRRONIUM/INDACATEROL/MOMETASONE [Suspect]
     Active Substance: GLYCOPYRRONIUM\INDACATEROL
     Indication: ASTHMA
     Dosage: UNK
     Route: 055
     Dates: start: 20181220
  4. RAMIPRIL. [Concomitant]
     Active Substance: RAMIPRIL
     Indication: HYPERTENSION
     Dosage: 5 MG, UNK
     Route: 065
     Dates: start: 20150501
  5. TRAIM [Concomitant]
     Indication: NEURITIS
     Dosage: 20 MG, UNK
     Dates: start: 20150107
  6. XYLONEST [Concomitant]
     Active Substance: PRILOCAINE HYDROCHLORIDE
     Dosage: UNK
     Dates: start: 20190107

REACTIONS (4)
  - Product use in unapproved indication [Unknown]
  - Electrocardiogram abnormal [Unknown]
  - Fibrin D dimer increased [Unknown]
  - Syncope [Recovered/Resolved]

NARRATIVE: CASE EVENT DATE: 20190107
